FAERS Safety Report 5586162-1 (Version None)
Quarter: 2008Q1

REPORT INFORMATION
  Report Type: 
  Country: None (occurrence: None)
  Receive Date: 20080104
  Receipt Date: 20071227
  Transmission Date: 20080703
  Serious: Yes (Hospitalization)
  Sender: FDA-Public Use
  Company Number: 2006-04-1447

PATIENT
  Age: 70 Year
  Sex: Male
  Weight: 105 kg

DRUGS (2)
  1. TEMOZOLOMIDE [Suspect]
     Indication: METASTATIC MALIGNANT MELANOMA
     Dosage: 340 MG; PO, 255 MG; PO
     Route: 048
     Dates: end: 20060307
  2. TEMOZOLOMIDE [Suspect]
     Indication: METASTATIC MALIGNANT MELANOMA
     Dosage: 340 MG; PO, 255 MG; PO
     Route: 048
     Dates: start: 20051207

REACTIONS (3)
  - LYMPHOCYTE COUNT ABNORMAL [None]
  - MALLORY-WEISS SYNDROME [None]
  - METASTASES TO CENTRAL NERVOUS SYSTEM [None]
